FAERS Safety Report 10213817 (Version 1)
Quarter: 2014Q2

REPORT INFORMATION
  Report Type: Spontaneous
  Country: IT (occurrence: IT)
  Receive Date: 20140603
  Receipt Date: 20140603
  Transmission Date: 20141212
  Serious: Yes (Hospitalization)
  Sender: FDA-Public Use
  Company Number: IT-MYLANLABS-2014S1012270

PATIENT
  Age: 77 Year
  Sex: Male

DRUGS (3)
  1. METFORMIN [Suspect]
     Indication: DIABETES MELLITUS
     Dosage: 2 DF DAILY
     Route: 048
     Dates: start: 20130101, end: 20131215
  2. HUMALOG [Suspect]
     Indication: DIABETES MELLITUS
     Dosage: 24 LU DAILY
     Route: 058
     Dates: start: 20130101, end: 20131215
  3. LANTUS [Suspect]
     Indication: DIABETES MELLITUS
     Dosage: 10 LU DAILY
     Route: 058
     Dates: start: 20130101, end: 20131215

REACTIONS (3)
  - Hypoglycaemia [Unknown]
  - Loss of consciousness [Unknown]
  - Muscle contractions involuntary [Unknown]
